FAERS Safety Report 4764064-8 (Version None)
Quarter: 2005Q3

REPORT INFORMATION
  Report Type: 
  Country: None (occurrence: None)
  Receive Date: 20050908
  Receipt Date: 20050517
  Transmission Date: 20060218
  Serious: Yes (Hospitalization)
  Sender: FDA-Public Use
  Company Number: US-MERCK-0505USA02138

PATIENT
  Age: 81 Year
  Sex: Male
  Weight: 95 kg

DRUGS (7)
  1. [THERAPY UNSPECIFIED] [Concomitant]
     Route: 065
  2. TYLENOL [Concomitant]
     Indication: ARTHRITIS
     Route: 065
  3. GLUCOTROL [Concomitant]
     Indication: DIABETES MELLITUS NON-INSULIN-DEPENDENT
     Route: 065
  4. HYDROCHLOROTHIAZIDE AND TRIAMTERENE [Concomitant]
     Indication: BLOOD PRESSURE
     Route: 065
  5. ALLOPURINOL [Concomitant]
     Indication: GOUT
     Route: 065
  6. VIOXX [Suspect]
     Indication: SCIATICA
     Route: 048
     Dates: start: 20000101, end: 20040801
  7. VIOXX [Suspect]
     Indication: ARTHRITIS
     Route: 048
     Dates: start: 20000101, end: 20040801

REACTIONS (27)
  - ANGINA UNSTABLE [None]
  - ANXIETY [None]
  - AORTIC VALVE INCOMPETENCE [None]
  - ARTHRALGIA [None]
  - ASTHENIA [None]
  - ATHEROSCLEROSIS [None]
  - ATRIOVENTRICULAR BLOCK FIRST DEGREE [None]
  - BASAL CELL CARCINOMA [None]
  - BLOOD CHOLESTEROL INCREASED [None]
  - BRONCHITIS [None]
  - CHEST DISCOMFORT [None]
  - CHEST PAIN [None]
  - CONTUSION [None]
  - CORONARY ARTERY DISEASE [None]
  - DEPRESSION [None]
  - DIFFICULTY IN WALKING [None]
  - DYSPNOEA [None]
  - FATIGUE [None]
  - INJURY [None]
  - MITRAL VALVE INCOMPETENCE [None]
  - MUSCLE SPASMS [None]
  - MYOCARDIAL INFARCTION [None]
  - PAIN IN EXTREMITY [None]
  - RENAL IMPAIRMENT [None]
  - SKIN INJURY [None]
  - SUPRAVENTRICULAR EXTRASYSTOLES [None]
  - VASCULAR STENOSIS [None]
